FAERS Safety Report 9739310 (Version 1)
Quarter: 2013Q4

REPORT INFORMATION
  Report Type: Spontaneous
  Country: US (occurrence: US)
  Receive Date: 20131209
  Receipt Date: 20131209
  Transmission Date: 20140711
  Serious: Yes (Death)
  Sender: FDA-Public Use
  Company Number: US-OTSUKA-US-2013-12269

PATIENT
  Age: 38 Year
  Sex: Male

DRUGS (2)
  1. BUSULFEX [Suspect]
     Indication: STEM CELL TRANSPLANT
  2. FLUDARABINE [Suspect]
     Indication: STEM CELL TRANSPLANT

REACTIONS (1)
  - Leukaemia recurrent [Unknown]
